FAERS Safety Report 13919186 (Version 2)
Quarter: 2017Q3

REPORT INFORMATION
  Report Type: Report from Study
  Country: FI (occurrence: FI)
  Receive Date: 20170830
  Receipt Date: 20170911
  Transmission Date: 20171127
  Serious: Yes (Hospitalization)
  Sender: FDA-Public Use
  Company Number: FI-BIOGEN-2017BI00449905

PATIENT
  Age: 51 Year
  Sex: Female

DRUGS (6)
  1. LOSATRIX COMP [Concomitant]
     Indication: HYPERTONIA
     Dosage: 100/25MG
     Route: 065
     Dates: start: 20000101
  2. TYSABRI [Suspect]
     Active Substance: NATALIZUMAB
     Indication: PRODUCT USED FOR UNKNOWN INDICATION
     Route: 065
     Dates: start: 20080429
  3. TYSABRI [Suspect]
     Active Substance: NATALIZUMAB
     Route: 042
     Dates: start: 20170621
  4. PROGYNOVA [Concomitant]
     Active Substance: ESTRADIOL VALERATE
     Indication: MENOPAUSE
     Route: 048
     Dates: start: 20120301
  5. ASA [Concomitant]
     Active Substance: ASPIRIN
     Indication: ANTIPLATELET THERAPY
     Route: 048
     Dates: start: 20110216
  6. TRIMETIN [Concomitant]
     Indication: PROPHYLAXIS URINARY TRACT INFECTION
     Route: 048
     Dates: start: 20151223

REACTIONS (1)
  - Transient ischaemic attack [Recovered/Resolved]

NARRATIVE: CASE EVENT DATE: 20170719
